FAERS Safety Report 6919106-8 (Version None)
Quarter: 2010Q3

REPORT INFORMATION
  Report Type: 
  Country: None (occurrence: None)
  Receive Date: 20100811
  Receipt Date: 20100730
  Transmission Date: 20110219
  Serious: Yes (Hospitalization)
  Sender: FDA-Public Use
  Company Number: ES-CELGENEUS-144-C5013-10071604

PATIENT
  Sex: Male
  Weight: 75 kg

DRUGS (14)
  1. LENALIDOMIDE [Suspect]
     Indication: MULTIPLE MYELOMA
     Route: 048
     Dates: start: 20100218
  2. LENALIDOMIDE [Suspect]
     Route: 048
     Dates: start: 20100701, end: 20100718
  3. DEXAMETHASONE [Suspect]
     Indication: MULTIPLE MYELOMA
     Route: 065
     Dates: start: 20100218
  4. DEXAMETHASONE [Suspect]
     Route: 065
     Dates: start: 20100701, end: 20100718
  5. ALLOPURINOL [Concomitant]
     Indication: PROPHYLAXIS
     Route: 065
     Dates: start: 20050615
  6. DOXAZOSIN [Concomitant]
     Indication: HYPERTENSION
     Route: 065
     Dates: start: 20000615
  7. ATORVASTATIN CALCIUM [Concomitant]
     Route: 065
     Dates: start: 20030615
  8. IRBESARTAN [Concomitant]
     Indication: PRODUCT USED FOR UNKNOWN INDICATION
     Route: 065
  9. HYDROCHLOROTHIAZIDE [Concomitant]
     Indication: HYPERTENSION
     Dosage: 300/25 MG
     Route: 065
     Dates: start: 20060615
  10. ASPIRINE [Concomitant]
     Indication: PROPHYLAXIS
     Route: 065
     Dates: start: 20100711
  11. RAMIPRIL [Concomitant]
     Indication: PROPHYLAXIS
     Route: 065
     Dates: start: 20100719
  12. OMEPRAZOLE [Concomitant]
     Indication: PROPHYLAXIS
     Route: 065
     Dates: start: 20070615
  13. MEGESTROL ACETATE [Concomitant]
     Route: 065
     Dates: start: 20100715
  14. COLCHICINE [Concomitant]
     Indication: PROPHYLAXIS
     Dates: start: 20100413

REACTIONS (2)
  - ANGINA PECTORIS [None]
  - ATRIAL FIBRILLATION [None]
